APPROVED DRUG PRODUCT: SELZENTRY
Active Ingredient: MARAVIROC
Strength: 75MG **Federal Register determination that product was not discontinued or withdrawn for safety or effectiveness reasons**
Dosage Form/Route: TABLET;ORAL
Application: N022128 | Product #004
Applicant: VIIV HEALTHCARE CO
Approved: Nov 4, 2016 | RLD: Yes | RS: No | Type: DISCN